FAERS Safety Report 14594891 (Version 1)
Quarter: 2018Q1

REPORT INFORMATION
  Report Type: Spontaneous
  Country: US (occurrence: US)
  Receive Date: 20180302
  Receipt Date: 20180302
  Transmission Date: 20180509
  Serious: Yes (Other)
  Sender: FDA-Public Use
  Company Number: US-AKORN PHARMACEUTICALS-2017AKN01224

PATIENT
  Age: 16 Year
  Sex: Male
  Weight: 88.44 kg

DRUGS (3)
  1. MYORISAN [Suspect]
     Active Substance: ISOTRETINOIN
     Dosage: 30 MG, 1X/DAY IN THE EVENING
     Route: 048
     Dates: start: 20170820, end: 20170911
  2. MYORISAN [Suspect]
     Active Substance: ISOTRETINOIN
     Dosage: 30 MG, 1X/DAY AT BEDTIME
     Route: 048
     Dates: start: 20170911, end: 20171113
  3. MYORISAN [Suspect]
     Active Substance: ISOTRETINOIN
     Indication: ACNE CYSTIC
     Dosage: 60 MG, 1X/DAY IN THE MORNING
     Route: 048
     Dates: start: 20170820, end: 20170911

REACTIONS (2)
  - Blood creatine phosphokinase increased [Not Recovered/Not Resolved]
  - Back pain [Recovering/Resolving]

NARRATIVE: CASE EVENT DATE: 2017
